FAERS Safety Report 5681021-8 (Version None)
Quarter: 2008Q1

REPORT INFORMATION
  Report Type: 
  Country: None (occurrence: None)
  Receive Date: 20080326
  Receipt Date: 20080314
  Transmission Date: 20080703
  Serious: Yes (Other)
  Sender: FDA-Public Use
  Company Number: US-PFIZER INC-2008024870

PATIENT
  Sex: Female

DRUGS (2)
  1. ZYVOX [Suspect]
     Indication: HYPERSENSITIVITY
  2. ZYVOX [Suspect]
     Indication: OSTEOMYELITIS

REACTIONS (6)
  - COMA [None]
  - CONFUSIONAL STATE [None]
  - CONVULSION [None]
  - HYPOKINESIA [None]
  - LEUKOENCEPHALOPATHY [None]
  - SEROTONIN SYNDROME [None]
